FAERS Safety Report 8507130-3 (Version None)
Quarter: 2012Q3

REPORT INFORMATION
  Report Type: 
  Country: None (occurrence: None)
  Receive Date: 20120703
  Receipt Date: 20120621
  Transmission Date: 20120928
  Serious: Yes (Death, Hospitalization)
  Sender: FDA-Public Use
  Company Number: US-JNJFOC-20120610085

PATIENT
  Age: 82 Year
  Sex: Female
  Weight: 92 kg

DRUGS (2)
  1. DECITABINE [Suspect]
     Indication: ACUTE MYELOID LEUKAEMIA
     Dosage: 20 MG/M2, INTRAVENOUS
     Route: 042
     Dates: start: 20120502, end: 20120608
  2. BORTEZOMIB [Suspect]
     Indication: ACUTE MYELOID LEUKAEMIA
     Dosage: 1.3 MG/M2, SUBCUTANEOUS
     Route: 058
     Dates: start: 20120502, end: 20120608

REACTIONS (16)
  - HYPOXIA [None]
  - ANAEMIA [None]
  - STAPHYLOCOCCAL BACTERAEMIA [None]
  - PLATELET COUNT DECREASED [None]
  - DYSPNOEA [None]
  - SEPSIS [None]
  - LYMPHOCYTE COUNT DECREASED [None]
  - MUSCULAR WEAKNESS [None]
  - REFUSAL OF TREATMENT BY PATIENT [None]
  - GENERAL PHYSICAL HEALTH DETERIORATION [None]
  - WHITE BLOOD CELL COUNT DECREASED [None]
  - FATIGUE [None]
  - PATHOGEN RESISTANCE [None]
  - RENAL FAILURE CHRONIC [None]
  - ACIDOSIS [None]
  - FEBRILE NEUTROPENIA [None]
